FAERS Safety Report 19133866 (Version 2)
Quarter: 2021Q4

REPORT INFORMATION
  Report Type: Spontaneous
  Country: US (occurrence: US)
  Receive Date: 20210414
  Receipt Date: 20211213
  Transmission Date: 20220303
  Serious: Yes (Hospitalization, Other)
  Sender: FDA-Public Use
  Company Number: US-PFIZER INC-2021382056

PATIENT
  Age: 72 Year
  Sex: Male

DRUGS (6)
  1. EUCRISA [Suspect]
     Active Substance: CRISABOROLE
     Indication: Pruritus
     Dosage: UNK, 2X/DAY (APPLY TO AFFECTED AREAS OF TRUNK AND LEGS BID)
     Route: 061
     Dates: start: 20210203
  2. EUCRISA [Suspect]
     Active Substance: CRISABOROLE
     Indication: Neurodermatitis
  3. EUCRISA [Suspect]
     Active Substance: CRISABOROLE
     Indication: Tinea cruris
  4. INSULIN NOS [Concomitant]
     Active Substance: INSULIN NOS
     Dosage: UNK
  5. KETOCONAZOLE [Concomitant]
     Active Substance: KETOCONAZOLE
     Dosage: UNK
  6. TRIAMCINOLONE ACETONIDE [Concomitant]
     Active Substance: TRIAMCINOLONE ACETONIDE

REACTIONS (2)
  - Cardiac failure congestive [Unknown]
  - Gallbladder disorder [Unknown]
